FAERS Safety Report 7166124-3 (Version None)
Quarter: 2010Q4

REPORT INFORMATION
  Report Type: 
  Country: None (occurrence: None)
  Receive Date: 20101216
  Receipt Date: 20101202
  Transmission Date: 20110411
  Serious: Yes (Life-Threatening, Hospitalization)
  Sender: FDA-Public Use
  Company Number: JP-JNJFOC-20101106174

PATIENT
  Age: 36 Year
  Sex: Male
  Weight: 53 kg

DRUGS (4)
  1. REMICADE [Suspect]
     Indication: ANKYLOSING SPONDYLITIS
     Dosage: 2ND INFUSION (DELAYED DUE TO PATIENT SCHEDULE); 263 MG
     Route: 042
  2. REMICADE [Suspect]
     Dosage: FIRST INFUSION; 265 MG
     Route: 042
  3. ANTIHISTAMINES [Suspect]
     Indication: ILL-DEFINED DISORDER
  4. AZULFIDINE [Concomitant]
     Route: 048

REACTIONS (24)
  - ADVERSE EVENT [None]
  - ANAPHYLACTIC SHOCK [None]
  - BRADYCARDIA [None]
  - COUGH [None]
  - DYSPNOEA [None]
  - ELECTROCARDIOGRAM QT PROLONGED [None]
  - ELECTROCARDIOGRAM ST SEGMENT DEPRESSION [None]
  - FAECAL INCONTINENCE [None]
  - FEELING ABNORMAL [None]
  - INFUSION RELATED REACTION [None]
  - JOINT ANKYLOSIS [None]
  - LOSS OF CONSCIOUSNESS [None]
  - MUSCULOSKELETAL STIFFNESS [None]
  - PNEUMONIA [None]
  - PRINZMETAL ANGINA [None]
  - PYREXIA [None]
  - RASH [None]
  - RESPIRATORY ARREST [None]
  - SCAB [None]
  - SEDATION [None]
  - TONIC CONVULSION [None]
  - TORSADE DE POINTES [None]
  - VENTRICULAR FIBRILLATION [None]
  - VENTRICULAR TACHYCARDIA [None]
